FAERS Safety Report 17933460 (Version 8)
Quarter: 2021Q2

REPORT INFORMATION
  Report Type: Spontaneous
  Country: JP (occurrence: JP)
  Receive Date: 20200623
  Receipt Date: 20210512
  Transmission Date: 20210717
  Serious: Yes (Death, Hospitalization, Other)
  Sender: FDA-Public Use
  Company Number: JP-BRISTOL-MYERS SQUIBB COMPANY-BMS-2020-049301

PATIENT
  Age: 71 Year
  Sex: Male
  Weight: 65.9 kg

DRUGS (2)
  1. OPDIVO [Suspect]
     Active Substance: NIVOLUMAB
     Indication: METASTATIC RENAL CELL CARCINOMA
     Dosage: 240 MILLIGRAM
     Route: 041
     Dates: start: 20200528, end: 20200528
  2. YERVOY [Suspect]
     Active Substance: IPILIMUMAB
     Indication: METASTATIC RENAL CELL CARCINOMA
     Dosage: 65 MILLIGRAM
     Route: 041
     Dates: start: 20200528, end: 20200528

REACTIONS (3)
  - Deep vein thrombosis [Recovering/Resolving]
  - Pneumonia [Fatal]
  - Pulmonary artery thrombosis [Recovering/Resolving]

NARRATIVE: CASE EVENT DATE: 20200610
